FAERS Safety Report 13639984 (Version 1)
Quarter: 2017Q2

REPORT INFORMATION
  Report Type: Spontaneous
  Country: US (occurrence: US)
  Receive Date: 20170609
  Receipt Date: 20170609
  Transmission Date: 20170830
  Serious: No
  Sender: FDA-Public Use
  Company Number: US-ROCHE-1497763

PATIENT
  Sex: Female

DRUGS (8)
  1. PROVIGIL [Concomitant]
     Active Substance: MODAFINIL
  2. TEGRETOL [Concomitant]
     Active Substance: CARBAMAZEPINE
  3. KLONOPIN [Suspect]
     Active Substance: CLONAZEPAM
     Indication: PRODUCT USED FOR UNKNOWN INDICATION
     Route: 065
  4. VIMPAT [Concomitant]
     Active Substance: LACOSAMIDE
     Route: 065
  5. FEMARA [Concomitant]
     Active Substance: LETROZOLE
  6. NEVANAC [Concomitant]
     Active Substance: NEPAFENAC
     Route: 065
  7. VIMPAT [Concomitant]
     Active Substance: LACOSAMIDE
     Route: 065
  8. LEXAPRO [Concomitant]
     Active Substance: ESCITALOPRAM OXALATE
     Route: 065

REACTIONS (3)
  - Dyskinesia [Unknown]
  - Gait disturbance [Unknown]
  - Macular oedema [Unknown]
